FAERS Safety Report 6118875-7 (Version None)
Quarter: 2009Q1

REPORT INFORMATION
  Report Type: 
  Country: None (occurrence: None)
  Receive Date: 20090316
  Receipt Date: 20090306
  Transmission Date: 20090719
  Serious: Yes (Other)
  Sender: FDA-Public Use
  Company Number: PHEH2009US02084

PATIENT
  Sex: Female

DRUGS (1)
  1. GENTEAL PM LUBRICANT EYE OINTMENT [Suspect]
     Dosage: UNK
     Dates: start: 20090201

REACTIONS (3)
  - BLINDNESS [None]
  - DRUG INEFFECTIVE [None]
  - VISUAL ACUITY REDUCED [None]
